FAERS Safety Report 13188475 (Version 1)
Quarter: 2017Q1

REPORT INFORMATION
  Report Type: Report from Study
  Country: NL (occurrence: NL)
  Receive Date: 20170206
  Receipt Date: 20170206
  Transmission Date: 20170428
  Serious: Yes (Other)
  Sender: FDA-Public Use
  Company Number: NL-AMGEN-NLDSL2017001465

PATIENT
  Age: 79 Year
  Sex: Female

DRUGS (1)
  1. ARANESP [Suspect]
     Active Substance: DARBEPOETIN ALFA
     Indication: MYELODYSPLASTIC SYNDROME
     Dosage: 500 MCG (500 MCG/ML , 1 ML), Q3WK
     Route: 058

REACTIONS (2)
  - Off label use [Unknown]
  - Terminal state [Unknown]

NARRATIVE: CASE EVENT DATE: 20170103
